FAERS Safety Report 5373224-7 (Version None)
Quarter: 2007Q2

REPORT INFORMATION
  Report Type: 
  Country: None (occurrence: None)
  Receive Date: 20070628
  Receipt Date: 20070619
  Transmission Date: 20071010
  Serious: Yes (Other)
  Sender: FDA-Public Use
  Company Number: PHNU2005DE04324

PATIENT

DRUGS (5)
  1. PROLEUKIN [Suspect]
     Indication: RENAL CELL CARCINOMA STAGE UNSPECIFIED
     Dosage: 7 MIU/M2, 5X/WEEK
     Route: 058
     Dates: start: 20030701, end: 20050101
  2. THALIDOMIDE [Suspect]
     Indication: RENAL CELL CARCINOMA STAGE UNSPECIFIED
     Dosage: 200 MG, QHS
     Route: 048
     Dates: start: 20030701, end: 20050101
  3. THALIDOMIDE [Suspect]
     Dosage: 400 MG, QHS
     Route: 048
     Dates: start: 20030701, end: 20050101
  4. ACETAMINOPHEN [Concomitant]
     Dosage: 500 MG, QHS
     Route: 048
     Dates: start: 20030701, end: 20050101
  5. ACETAMINOPHEN [Concomitant]
     Dosage: 1000 MG, QHS
     Route: 048
     Dates: start: 20030701, end: 20050101

REACTIONS (6)
  - CONSTIPATION [None]
  - FATIGUE [None]
  - FLUID RETENTION [None]
  - ILEUS PARALYTIC [None]
  - INFLUENZA LIKE ILLNESS [None]
  - OEDEMA [None]
